FAERS Safety Report 6204067-X (Version None)
Quarter: 2009Q2

REPORT INFORMATION
  Report Type: 
  Country: None (occurrence: None)
  Receive Date: 20090518
  Receipt Date: 20090226
  Transmission Date: 20091009
  Serious: No
  Sender: FDA-Public Use
  Company Number: WAES 0903USA01911

PATIENT
  Age: 55 Year
  Sex: Female
  Weight: 73.4827 kg

DRUGS (13)
  1. JANUVIA [Suspect]
     Indication: TYPE 2 DIABETES MELLITUS
     Dosage: 100 MG/DAILY/PO
     Route: 048
     Dates: start: 20080527, end: 20080528
  2. ACCUPRIL [Concomitant]
  3. CENTRUM SILVER [Concomitant]
  4. COSOPT [Concomitant]
  5. CRESTOR [Concomitant]
  6. DITROPAN XL [Concomitant]
  7. GLIPIZIDE [Concomitant]
  8. GLUCOPHAGE XR [Concomitant]
  9. LOVAZA [Concomitant]
  10. PLAVIX [Concomitant]
  11. ZYRTEC [Concomitant]
  12. ASPIRIN [Concomitant]
  13. FERROUS SULFATE TAB [Concomitant]

REACTIONS (1)
  - RASH PRURITIC [None]
